FAERS Safety Report 4563824-6 (Version None)
Quarter: 2005Q1

REPORT INFORMATION
  Report Type: 
  Country: None (occurrence: None)
  Receive Date: 20050112
  Receipt Date: 20050112
  Transmission Date: 20050727
  Serious: Yes (Other)
  Sender: FDA-Public Use
  Company Number: None

PATIENT
  Age: 76 Year
  Sex: Female
  Weight: 78.0187 kg

DRUGS (1)
  1. METFORMIN HCL [Suspect]
     Indication: DIABETES MELLITUS INSULIN-DEPENDENT
     Dosage: 500 MG BID PO
     Route: 048

REACTIONS (2)
  - STOMACH DISCOMFORT [None]
  - VOMITING [None]
